FAERS Safety Report 10921427 (Version 1)
Quarter: 2015Q1

REPORT INFORMATION
  Report Type: Spontaneous
  Country: US (occurrence: None)
  Receive Date: 20150313
  Receipt Date: 20150313
  Transmission Date: 20150721
  Serious: Yes (Death)
  Sender: FDA-Public Use
  Company Number: None

PATIENT
  Age: 71 Year
  Sex: Male

DRUGS (2)
  1. SENSIPAR [Suspect]
     Active Substance: CINACALCET HYDROCHLORIDE
     Indication: HYPOPARATHYROIDISM
     Route: 048
     Dates: start: 20140212, end: 20150311
  2. SENSIPAR [Suspect]
     Active Substance: CINACALCET HYDROCHLORIDE
     Indication: RENAL DISORDER
     Route: 048
     Dates: start: 20140212, end: 20150311

REACTIONS (1)
  - Diabetes mellitus [None]

NARRATIVE: CASE EVENT DATE: 20150311
